FAERS Safety Report 5520085-9 (Version None)
Quarter: 2007Q4

REPORT INFORMATION
  Report Type: 
  Country: None (occurrence: None)
  Receive Date: 20071116
  Receipt Date: 20071107
  Transmission Date: 20080405
  Serious: Yes (Other)
  Sender: FDA-Public Use
  Company Number: US-SHR-US-2007-009063

PATIENT
  Age: 29 Year
  Sex: Female

DRUGS (7)
  1. BETASERON [Suspect]
     Indication: RELAPSING-REMITTING MULTIPLE SCLEROSIS
     Dosage: 8 MIU, EVERY 2D
     Route: 058
     Dates: start: 20060307
  2. NORCO [Concomitant]
  3. MOTRIN [Concomitant]
  4. STOOL SOFTENER [Concomitant]
  5. BACLOFEN [Concomitant]
  6. FIORICET W/ CODEINE [Concomitant]
  7. WELLBUTRIN [Concomitant]

REACTIONS (7)
  - CONSTIPATION [None]
  - DARK CIRCLES UNDER EYES [None]
  - DEPRESSION [None]
  - DYSPEPSIA [None]
  - HAEMORRHOIDS [None]
  - INJECTION SITE BRUISING [None]
  - RECTAL HAEMORRHAGE [None]
